FAERS Safety Report 18089198 (Version 1)
Quarter: 2020Q3

REPORT INFORMATION
  Report Type: Spontaneous
  Country: US (occurrence: US)
  Receive Date: 20200729
  Receipt Date: 20200729
  Transmission Date: 20201103
  Serious: Yes (Other)
  Sender: FDA-Public Use
  Company Number: US-MALLINCKRODT-T202003690

PATIENT
  Sex: Female

DRUGS (1)
  1. H.P. ACTHAR [Suspect]
     Active Substance: CORTICOTROPIN
     Indication: STILL^S DISEASE
     Dosage: UNK
     Route: 065
     Dates: start: 2018

REACTIONS (2)
  - Product use in unapproved indication [Not Recovered/Not Resolved]
  - Spinal disorder [Unknown]
